FAERS Safety Report 4653981-5 (Version None)
Quarter: 2005Q2

REPORT INFORMATION
  Report Type: 
  Country: None (occurrence: None)
  Receive Date: 20050504
  Receipt Date: 20050422
  Transmission Date: 20051028
  Serious: Yes (Life-Threatening, Other)
  Sender: FDA-Public Use
  Company Number: HQWYE251025APR05

PATIENT
  Age: 69 Year
  Sex: Male

DRUGS (10)
  1. AMIODARONE HCL [Suspect]
     Indication: ATRIAL FIBRILLATION
     Dosage: 300 MG 1X PER 1 DAY
     Route: 042
     Dates: start: 20050322, end: 20050323
  2. AMIODARONE HCL [Suspect]
     Indication: ATRIAL FIBRILLATION
     Dosage: 1000 MG 1X PER 1 DAY
     Route: 048
     Dates: start: 20050322, end: 20050323
  3. COUMADIN [Concomitant]
  4. ASPIRIN (ACETHYSALCYLIC ACID) [Concomitant]
  5. FUROSEMIDE [Concomitant]
  6. CONVERTIN (ENALAPRIL MALEATE) [Concomitant]
  7. NORMITEN (ATENOLOL) [Concomitant]
  8. SIMOVIL (SIMVASTATIN) [Concomitant]
  9. LOSEC (OMEPRAZOLE) [Concomitant]
  10. ALDACTONE [Concomitant]

REACTIONS (2)
  - ANAPHYLACTIC SHOCK [None]
  - RESPIRATORY FAILURE [None]
